FAERS Safety Report 13618779 (Version 1)
Quarter: 2017Q2

REPORT INFORMATION
  Report Type: Report from Study
  Country: DE (occurrence: DE)
  Receive Date: 20170606
  Receipt Date: 20170606
  Transmission Date: 20170830
  Serious: Yes (Hospitalization)
  Sender: FDA-Public Use
  Company Number: DE-BAYER-2017-100447

PATIENT
  Age: 50 Year
  Sex: Female
  Weight: 53 kg

DRUGS (4)
  1. PHENPROCOUMON [Concomitant]
     Active Substance: PHENPROCOUMON
     Dosage: UNK
     Route: 048
  2. BOSENTAN. [Concomitant]
     Active Substance: BOSENTAN
     Dosage: 250 MG/D, UNK
     Dates: start: 2013
  3. SELEXIPAG [Concomitant]
     Active Substance: SELEXIPAG
     Indication: PULMONARY HYPERTENSION
     Dosage: 2400 MG/D, UNK
     Dates: start: 20160810
  4. RIOCIGUAT [Suspect]
     Active Substance: RIOCIGUAT
     Indication: PULMONARY ARTERIAL HYPERTENSION
     Dosage: 6 MG/D, UNK
     Dates: start: 2010

REACTIONS (1)
  - Syncope [Recovered/Resolved]

NARRATIVE: CASE EVENT DATE: 20170223
